FAERS Safety Report 12180209 (Version 3)
Quarter: 2016Q2

REPORT INFORMATION
  Report Type: Report from Study
  Country: AL (occurrence: AL)
  Receive Date: 20160315
  Receipt Date: 20160506
  Transmission Date: 20160815
  Serious: Yes (Other)
  Sender: FDA-Public Use
  Company Number: AL-APOPHARMA USA, INC.-2016AP007003

PATIENT
  Age: 18 Year
  Sex: Female

DRUGS (2)
  1. DEFERIPRONE [Suspect]
     Active Substance: DEFERIPRONE
     Dosage: 1360 MG, TID
     Route: 048
     Dates: start: 20160307
  2. DEFERIPRONE [Suspect]
     Active Substance: DEFERIPRONE
     Indication: THALASSAEMIA BETA
     Dosage: 1360 MG, TID
     Route: 048
     Dates: start: 20150626, end: 20160226

REACTIONS (1)
  - Hypertransaminasaemia [Recovered/Resolved]

NARRATIVE: CASE EVENT DATE: 20160226
